FAERS Safety Report 14680059 (Version 1)
Quarter: 2018Q1

REPORT INFORMATION
  Report Type: Spontaneous
  Country: JP (occurrence: JP)
  Receive Date: 20180326
  Receipt Date: 20180326
  Transmission Date: 20180509
  Serious: Yes (Death)
  Sender: FDA-Public Use
  Company Number: JP-BAYER-2017-114621

PATIENT
  Age: 65 Year
  Sex: Male

DRUGS (2)
  1. XOFIGO [Suspect]
     Active Substance: RADIUM RA-223 DICHLORIDE
     Indication: HORMONE-REFRACTORY PROSTATE CANCER
     Dosage: 1DF, ONCE, 55 KBG/KG?
     Route: 042
     Dates: start: 20170110, end: 20170110
  2. XOFIGO [Suspect]
     Active Substance: RADIUM RA-223 DICHLORIDE
     Indication: METASTASES TO BONE
     Dosage: 1DF, ONCE, 55 KBG/KG?
     Route: 042
     Dates: start: 20170207, end: 20170207

REACTIONS (6)
  - Platelet count decreased [Unknown]
  - Neutrophil count decreased [Unknown]
  - Platelet count decreased [Unknown]
  - Anaemia [Unknown]
  - Hormone-refractory prostate cancer [Fatal]
  - Anaemia [Unknown]

NARRATIVE: CASE EVENT DATE: 20170206
